FAERS Safety Report 9206913 (Version 2)
Quarter: 2013Q2

REPORT INFORMATION
  Report Type: Spontaneous
  Country: US (occurrence: US)
  Receive Date: 20130403
  Receipt Date: 20130508
  Transmission Date: 20140414
  Serious: Yes (Other)
  Sender: FDA-Public Use
  Company Number: US-BAYER-2013-039261

PATIENT
  Age: 51 Year
  Sex: Female

DRUGS (8)
  1. YASMIN [Suspect]
     Indication: ACNE
     Dosage: UNK
     Dates: start: 200603
  2. YASMIN [Suspect]
     Indication: MENSTRUAL DISORDER
  3. IRON [Concomitant]
     Indication: IRON DEFICIENCY ANAEMIA
     Dosage: UNK
     Route: 042
     Dates: end: 20060614
  4. METHADONE [Concomitant]
     Dosage: UNK
     Dates: start: 20060614
  5. CYMBALTA [Concomitant]
     Dosage: UNK
     Dates: start: 20060614
  6. LEVOXYL [Concomitant]
     Dosage: UNK
     Dates: start: 20060614
  7. AMBIEN [Concomitant]
     Dosage: UNK
     Dates: start: 20060614
  8. ZELNORM [Concomitant]

REACTIONS (10)
  - Deep vein thrombosis [None]
  - Injury [None]
  - Pain [None]
  - Fear [None]
  - Anxiety [None]
  - Emotional distress [None]
  - Pain [None]
  - Thrombophlebitis superficial [None]
  - Axillary vein thrombosis [None]
  - Deep vein thrombosis [None]
